FAERS Safety Report 12004714 (Version 1)
Quarter: 2016Q1

REPORT INFORMATION
  Report Type: Spontaneous
  Country: ZA (occurrence: ZA)
  Receive Date: 20160204
  Receipt Date: 20160204
  Transmission Date: 20160526
  Serious: Yes (Other)
  Sender: FDA-Public Use
  Company Number: ZA-SA-2016SA017694

PATIENT
  Age: 77 Year
  Sex: Male

DRUGS (6)
  1. UROMAX [Concomitant]
     Route: 065
  2. HYDROCHLOROTHIAZIDE/VALSARTAN [Concomitant]
     Indication: BLOOD PRESSURE ABNORMAL
     Route: 065
  3. IVEDAL [Suspect]
     Active Substance: ZOLPIDEM TARTRATE
     Indication: INSOMNIA
     Route: 048
  4. ESPIRIDE [Concomitant]
     Route: 065
  5. PURICOS [Concomitant]
     Active Substance: ALLOPURINOL
     Route: 065
  6. FINASTERIDE. [Concomitant]
     Active Substance: FINASTERIDE
     Route: 065

REACTIONS (1)
  - Deafness [Unknown]
